FAERS Safety Report 8435126-9 (Version None)
Quarter: 2012Q2

REPORT INFORMATION
  Report Type: 
  Country: None (occurrence: None)
  Receive Date: 20120614
  Receipt Date: 20120611
  Transmission Date: 20120825
  Serious: Yes (Other)
  Sender: FDA-Public Use
  Company Number: PHHY2012IT048677

PATIENT
  Sex: Female

DRUGS (3)
  1. FASLODEX [Concomitant]
     Dosage: 250 MG/5ML
     Route: 030
  2. AROMASIN [Concomitant]
     Dosage: 25 MG, UNK
     Route: 048
  3. ZOMETA [Suspect]
     Indication: METASTASES TO BONE
     Dosage: 4 MG/5 ML, QMO
     Route: 042
     Dates: start: 20090101, end: 20120315

REACTIONS (1)
  - OSTEONECROSIS OF JAW [None]
